FAERS Safety Report 22124550 (Version 4)
Quarter: 2023Q2

REPORT INFORMATION
  Report Type: Spontaneous
  Country: US (occurrence: US)
  Receive Date: 20230322
  Receipt Date: 20230517
  Transmission Date: 20230722
  Serious: Yes (Hospitalization, Other)
  Sender: FDA-Public Use
  Company Number: US-SA-SAC20230321001533

PATIENT
  Age: 28 Year
  Sex: Male

DRUGS (18)
  1. ELOCTATE [Suspect]
     Active Substance: EFMOROCTOCOG ALFA
     Indication: Factor VIII deficiency
     Dosage: 5440 U, (4896-5984) SLOW IV PUSH EVERY 5 DAYS AND AS NEEDED EVERY 24 HOURS
     Route: 042
     Dates: start: 201502
  2. ELOCTATE [Suspect]
     Active Substance: EFMOROCTOCOG ALFA
     Indication: Factor VIII deficiency
     Dosage: 5440 U, (4896-5984) SLOW IV PUSH EVERY 5 DAYS AND AS NEEDED EVERY 24 HOURS
     Route: 042
     Dates: start: 201502
  3. ELOCTATE [Suspect]
     Active Substance: EFMOROCTOCOG ALFA
     Indication: Haemophilia
     Dosage: 5440 U, (4896-5984) SLOW IV PUSH EVERY 5 DAYS AND AS NEEDED EVERY 24 HOURS
     Route: 042
     Dates: start: 201502
  4. ELOCTATE [Suspect]
     Active Substance: EFMOROCTOCOG ALFA
     Indication: Haemophilia
     Dosage: 5440 U, (4896-5984) SLOW IV PUSH EVERY 5 DAYS AND AS NEEDED EVERY 24 HOURS
     Route: 042
     Dates: start: 201502
  5. ELOCTATE [Suspect]
     Active Substance: EFMOROCTOCOG ALFA
     Dosage: 300 MG, Q5D
     Route: 042
     Dates: start: 201502
  6. ELOCTATE [Suspect]
     Active Substance: EFMOROCTOCOG ALFA
     Dosage: 300 MG, Q5D
     Route: 042
     Dates: start: 201502
  7. ELOCTATE [Suspect]
     Active Substance: EFMOROCTOCOG ALFA
     Dosage: 750 IU, Q5D
     Route: 042
     Dates: start: 201502
  8. ELOCTATE [Suspect]
     Active Substance: EFMOROCTOCOG ALFA
     Dosage: 750 IU, Q5D
     Route: 042
     Dates: start: 201502
  9. ELOCTATE [Suspect]
     Active Substance: EFMOROCTOCOG ALFA
     Dosage: 5440 U, QD
     Route: 042
     Dates: start: 20190118
  10. ELOCTATE [Suspect]
     Active Substance: EFMOROCTOCOG ALFA
     Dosage: 5440 U, QD
     Route: 042
     Dates: start: 20190118
  11. ELOCTATE [Suspect]
     Active Substance: EFMOROCTOCOG ALFA
     Dosage: 5440 U, QD
     Route: 041
     Dates: start: 20230318, end: 20230319
  12. ELOCTATE [Suspect]
     Active Substance: EFMOROCTOCOG ALFA
     Dosage: 5440 U, QD
     Route: 041
     Dates: start: 20230318, end: 20230319
  13. ELOCTATE [Suspect]
     Active Substance: EFMOROCTOCOG ALFA
     Dosage: 5440 U, 1X
     Route: 041
     Dates: start: 20230321, end: 20230321
  14. ELOCTATE [Suspect]
     Active Substance: EFMOROCTOCOG ALFA
     Dosage: 5440 U, 1X
     Route: 041
     Dates: start: 20230321, end: 20230321
  15. ELOCTATE [Suspect]
     Active Substance: EFMOROCTOCOG ALFA
     Dosage: 5440 U, 1X
     Route: 041
     Dates: start: 20230323, end: 20230323
  16. ELOCTATE [Suspect]
     Active Substance: EFMOROCTOCOG ALFA
     Dosage: 5440 U, 1X
     Route: 041
     Dates: start: 20230323, end: 20230323
  17. ELOCTATE [Suspect]
     Active Substance: EFMOROCTOCOG ALFA
     Dosage: 5440 U, 1X
     Route: 041
     Dates: start: 20230325, end: 20230325
  18. ELOCTATE [Suspect]
     Active Substance: EFMOROCTOCOG ALFA
     Dosage: 5440 U, 1X
     Route: 041
     Dates: start: 20230325, end: 20230325

REACTIONS (2)
  - Haemorrhage [Unknown]
  - Muscle haemorrhage [Unknown]

NARRATIVE: CASE EVENT DATE: 20230101
